FAERS Safety Report 21580542 (Version 1)
Quarter: 2022Q4

REPORT INFORMATION
  Report Type: Spontaneous
  Country: CH (occurrence: CH)
  Receive Date: 20221110
  Receipt Date: 20221110
  Transmission Date: 20230113
  Serious: Yes (Other)
  Sender: FDA-Public Use
  Company Number: CH-002147023-NVSC2022CH251986

PATIENT
  Sex: Male

DRUGS (4)
  1. KESIMPTA [Suspect]
     Active Substance: OFATUMUMAB
     Indication: Product used for unknown indication
     Dosage: UNK (1ST INJECTION)
     Route: 065
  2. KESIMPTA [Suspect]
     Active Substance: OFATUMUMAB
     Dosage: UNK (2ND INJECTION)
     Route: 065
  3. KESIMPTA [Suspect]
     Active Substance: OFATUMUMAB
     Dosage: UNK (3RD INJECTION)
     Route: 065
  4. KESIMPTA [Suspect]
     Active Substance: OFATUMUMAB
     Dosage: UNK (4TH INJECTION)
     Route: 065

REACTIONS (2)
  - Pneumonia [Unknown]
  - Inappropriate schedule of product administration [Unknown]
